FAERS Safety Report 6147909-9 (Version None)
Quarter: 2009Q2

REPORT INFORMATION
  Report Type: 
  Country: None (occurrence: None)
  Receive Date: 20090403
  Receipt Date: 20090326
  Transmission Date: 20091009
  Serious: Yes (Hospitalization)
  Sender: FDA-Public Use
  Company Number: TOR-2009-0016

PATIENT
  Sex: Male

DRUGS (1)
  1. FARESTON [Suspect]
     Indication: DESMOID TUMOUR
     Dosage: 140 MG

REACTIONS (1)
  - PANCREATITIS [None]
